FAERS Safety Report 5372495-0 (Version None)
Quarter: 2007Q2

REPORT INFORMATION
  Report Type: 
  Country: None (occurrence: None)
  Receive Date: 20070625
  Receipt Date: 20070614
  Transmission Date: 20071010
  Serious: Yes (Hospitalization)
  Sender: FDA-Public Use
  Company Number: 47133

PATIENT
  Age: 55 Year
  Sex: Female

DRUGS (4)
  1. ACETAMINOPHEN [Suspect]
     Dosage: 600MG/QD/UNKNOWN
  2. MINOCYCLINE HCL [Concomitant]
  3. THEOPHYLLINE [Concomitant]
  4. PROCATEROL HCL [Concomitant]

REACTIONS (1)
  - EOSINOPHILIC PNEUMONIA [None]
